FAERS Safety Report 23992204 (Version 1)
Quarter: 2024Q2

REPORT INFORMATION
  Report Type: Spontaneous
  Country: GB (occurrence: GB)
  Receive Date: 20240620
  Receipt Date: 20240620
  Transmission Date: 20240716
  Serious: Yes (Other)
  Sender: FDA-Public Use
  Company Number: GB-CELLTRION INC.-2024GB014676

PATIENT

DRUGS (1)
  1. HERZUMA [Suspect]
     Active Substance: TRASTUZUMAB-PKRB
     Indication: Gastric cancer
     Dosage: UNK
     Dates: start: 20240517, end: 20240517

REACTIONS (8)
  - Depressed level of consciousness [Unknown]
  - Bradycardia [Unknown]
  - Gastrointestinal pain [Recovered/Resolved]
  - Pallor [Unknown]
  - Dyspnoea [Unknown]
  - Abdominal pain [Unknown]
  - Hypotension [Unknown]
  - Oxygen saturation decreased [Unknown]

NARRATIVE: CASE EVENT DATE: 20240517
